FAERS Safety Report 7439611-8 (Version None)
Quarter: 2011Q2

REPORT INFORMATION
  Report Type: 
  Country: None (occurrence: None)
  Receive Date: 20110427
  Receipt Date: 20110413
  Transmission Date: 20111010
  Serious: Yes (Other)
  Sender: FDA-Public Use
  Company Number: US-AMGEN-USASP2010008398

PATIENT
  Age: 71 Year
  Sex: Female

DRUGS (1)
  1. ENBREL [Suspect]
     Indication: RHEUMATOID ARTHRITIS
     Dosage: 50 MG, QWK
     Dates: start: 20091001

REACTIONS (9)
  - RHEUMATOID ARTHRITIS [None]
  - CONTINUOUS POSITIVE AIRWAY PRESSURE [None]
  - TEMPOROMANDIBULAR JOINT SYNDROME [None]
  - DEPRESSION [None]
  - DISTURBANCE IN ATTENTION [None]
  - SPINAL OSTEOARTHRITIS [None]
  - EYE PAIN [None]
  - TINNITUS [None]
  - VISUAL ACUITY REDUCED [None]
